FAERS Safety Report 15407013 (Version 1)
Quarter: 2018Q3

REPORT INFORMATION
  Report Type: Spontaneous
  Country: US (occurrence: US)
  Receive Date: 20180920
  Receipt Date: 20180920
  Transmission Date: 20181010
  Serious: Yes (Life-Threatening, Other)
  Sender: FDA-Public Use
  Company Number: None

PATIENT
  Age: 64 Year
  Sex: Female
  Weight: 71.67 kg

DRUGS (1)
  1. AUBAGIO [Suspect]
     Active Substance: TERIFLUNOMIDE
     Indication: RELAPSING-REMITTING MULTIPLE SCLEROSIS

REACTIONS (7)
  - Fatigue [None]
  - Alopecia [None]
  - Stomatitis [None]
  - Pain [None]
  - Hypoaesthesia [None]
  - White blood cell count decreased [None]
  - Neutrophil count decreased [None]
